FAERS Safety Report 8699178 (Version 2)
Quarter: 2012Q4

REPORT INFORMATION
  Report Type: 
  Country: US (occurrence: US)
  Receive Date: 20120802
  Receipt Date: 20120907
  Transmission Date: 20130627
  Serious: Yes (Other)
  Sender: FDA-Public Use
  Company Number: US-PFIZER INC-2012186263

PATIENT
  Age: 89 Year
  Sex: Female
  Weight: 52.15 kg

DRUGS (8)
  1. LIPITOR [Suspect]
     Indication: BLOOD CHOLESTEROL INCREASED
     Dosage: 10 mg, 1x/day
     Route: 048
  2. PRESERVISION [Concomitant]
     Dosage: UNK
  3. SYMBICORT [Concomitant]
     Dosage: UNK, 2x/day
  4. OMEPRAZOLE [Concomitant]
     Dosage: UNK, 1x/day
  5. BABY ASPIRIN [Concomitant]
     Dosage: 81 mg, 1x/day
  6. CLONAZEPAM [Concomitant]
     Dosage: UNK, 1x/day
  7. CALCIUM CITRATE [Concomitant]
     Dosage: UNK, 1x/day
  8. FLAXSEED OIL [Concomitant]
     Dosage: UNK, 2x/day

REACTIONS (6)
  - Chronic lymphocytic leukaemia [Not Recovered/Not Resolved]
  - Lymphoma [Not Recovered/Not Resolved]
  - Cardiac failure congestive [Unknown]
  - Arthritis [Unknown]
  - Eye injury [Unknown]
  - Seasonal allergy [Unknown]
